FAERS Safety Report 10021427 (Version 1)
Quarter: 2014Q1

REPORT INFORMATION
  Report Type: Spontaneous
  Country: US (occurrence: None)
  Receive Date: 20140318
  Receipt Date: 20140318
  Transmission Date: 20141002
  Serious: Yes (Disabling)
  Sender: FDA-Public Use
  Company Number: None

PATIENT
  Age: 48 Year
  Sex: Female
  Weight: 55.79 kg

DRUGS (1)
  1. CIPROFLOXACIN 250 MG AUROBINDO [Suspect]
     Route: 048
     Dates: start: 20140207, end: 20140208

REACTIONS (10)
  - Pain [None]
  - Neuralgia [None]
  - Hypoaesthesia [None]
  - Tinnitus [None]
  - Gastric disorder [None]
  - Myalgia [None]
  - Night sweats [None]
  - Tendon disorder [None]
  - Toxicity to various agents [None]
  - Swelling [None]
